FAERS Safety Report 12457259 (Version 1)
Quarter: 2016Q2

REPORT INFORMATION
  Report Type: Report from Study
  Country: DE (occurrence: FR)
  Receive Date: 20160610
  Receipt Date: 20160610
  Transmission Date: 20160815
  Serious: Yes (Death)
  Sender: FDA-Public Use
  Company Number: DE-ACTELION-A-NJ2016-137622

PATIENT
  Age: 85 Year
  Sex: Male

DRUGS (1)
  1. VENTAVIS [Suspect]
     Active Substance: ILOPROST
     Indication: PULMONARY HYPERTENSION
     Dosage: 5 MCG, 6ID
     Route: 055
     Dates: start: 20131223, end: 20160601

REACTIONS (1)
  - Death [Fatal]

NARRATIVE: CASE EVENT DATE: 20160601
